FAERS Safety Report 8213594-5 (Version None)
Quarter: 2012Q1

REPORT INFORMATION
  Report Type: 
  Country: None (occurrence: None)
  Receive Date: 20120315
  Receipt Date: 20120306
  Transmission Date: 20120608
  Serious: Yes (Disabling, Other)
  Sender: FDA-Public Use
  Company Number: DE-ASTRAZENECA-2012SE12179

PATIENT
  Age: 596 Month
  Sex: Female
  Weight: 61 kg

DRUGS (2)
  1. BIPHOSPHONATE [Concomitant]
     Indication: METASTASES TO BONE
     Route: 042
     Dates: start: 20111201
  2. FASLODEX [Suspect]
     Indication: BREAST CANCER METASTATIC
     Route: 030
     Dates: start: 20110501, end: 20111101

REACTIONS (8)
  - DISEASE PROGRESSION [None]
  - METASTASES TO BONE [None]
  - BLOOD FOLLICLE STIMULATING HORMONE INCREASED [None]
  - BREAST CANCER [None]
  - METASTASES TO LUNG [None]
  - OVARIAN CYST [None]
  - OESTRADIOL INCREASED [None]
  - TUMOUR MARKER INCREASED [None]
